FAERS Safety Report 25802196 (Version 1)
Quarter: 2025Q3

REPORT INFORMATION
  Report Type: Spontaneous
  Country: US (occurrence: None)
  Receive Date: 20250912
  Receipt Date: 20250912
  Transmission Date: 20251020
  Serious: Yes (Death)
  Sender: FDA-CTU
  Company Number: None

PATIENT
  Age: 71 Year
  Sex: Male

DRUGS (20)
  1. OFEV [Suspect]
     Active Substance: NINTEDANIB
     Indication: Idiopathic pulmonary fibrosis
     Dosage: FREQUENCY : TWICE A DAY;?
     Route: 048
     Dates: start: 20230428, end: 20250826
  2. ARIPIPRAZOLE [Concomitant]
     Active Substance: ARIPIPRAZOLE
  3. BUPROPION [Concomitant]
     Active Substance: BUPROPION
  4. TRAZODONE [Concomitant]
     Active Substance: TRAZODONE HYDROCHLORIDE
  5. PREDNISONE [Concomitant]
     Active Substance: PREDNISONE
  6. NORCO [Concomitant]
     Active Substance: ACETAMINOPHEN\HYDROCODONE BITARTRATE
  7. DUONEB [Concomitant]
     Active Substance: ALBUTEROL SULFATE\IPRATROPIUM BROMIDE
  8. TRAMADOL [Concomitant]
     Active Substance: TRAMADOL
  9. LORAZEPAM [Concomitant]
     Active Substance: LORAZEPAM
  10. LACTULOSE [Concomitant]
     Active Substance: LACTULOSE
  11. morphine concentrate [Concomitant]
  12. oxygen intranasal [Concomitant]
  13. MAGNESIUM CITRATE [Concomitant]
     Active Substance: MAGNESIUM CITRATE
  14. PSYLLIUM HUSK [Concomitant]
     Active Substance: PSYLLIUM HUSK
  15. SEPTRA [Concomitant]
     Active Substance: SULFAMETHOXAZOLE\TRIMETHOPRIM
  16. ds [Concomitant]
  17. HUMULIN R [Concomitant]
     Active Substance: INSULIN HUMAN
  18. INSULIN GLARGINE [Concomitant]
     Active Substance: INSULIN GLARGINE
  19. BENZONATATE [Concomitant]
     Active Substance: BENZONATATE
  20. ALBUTEROL SULFATE [Concomitant]
     Active Substance: ALBUTEROL SULFATE

REACTIONS (1)
  - Death [None]

NARRATIVE: CASE EVENT DATE: 20250826
